FAERS Safety Report 7379119-1 (Version None)
Quarter: 2011Q1

REPORT INFORMATION
  Report Type: 
  Country: None (occurrence: None)
  Receive Date: 20110328
  Receipt Date: 20110325
  Transmission Date: 20110831
  Serious: Yes (Hospitalization, Other)
  Sender: FDA-Public Use
  Company Number: US-AMGEN-USASP2011016203

PATIENT
  Sex: Male
  Weight: 64.4 kg

DRUGS (16)
  1. CALCIUM PLUS VITAMIN D [Concomitant]
  2. ATIVAN [Concomitant]
  3. GLYBURIDE [Concomitant]
  4. AMIODARONE [Concomitant]
  5. LIPITOR [Concomitant]
  6. PREDNISONE [Concomitant]
  7. NPLATE [Suspect]
     Indication: IDIOPATHIC THROMBOCYTOPENIC PURPURA
     Dates: start: 20100301
  8. CLONIDINE [Concomitant]
  9. COLACE [Concomitant]
  10. TYLENOL (CAPLET) [Concomitant]
  11. ISOSORBIDE DINITRATE [Concomitant]
  12. PANTOPRAZOLE [Concomitant]
  13. BUMEX [Concomitant]
  14. DIOVAN [Concomitant]
  15. FELODIPINE [Concomitant]
  16. MULTI-VITAMIN [Concomitant]

REACTIONS (9)
  - HYPOAESTHESIA [None]
  - VISION BLURRED [None]
  - DIPLOPIA [None]
  - PARAESTHESIA [None]
  - PLATELET COUNT DECREASED [None]
  - DIZZINESS [None]
  - VISUAL IMPAIRMENT [None]
  - GAIT DISTURBANCE [None]
  - GLAUCOMA [None]
